FAERS Safety Report 11836850 (Version 1)
Quarter: 2015Q4

REPORT INFORMATION
  Report Type: Spontaneous
  Country: US (occurrence: US)
  Receive Date: 20151215
  Receipt Date: 20151215
  Transmission Date: 20160305
  Serious: Yes (Hospitalization)
  Sender: FDA-Public Use
  Company Number: US-ASTELLAS-2015US011059

PATIENT
  Sex: Male

DRUGS (1)
  1. TARCEVA [Suspect]
     Active Substance: ERLOTINIB HYDROCHLORIDE
     Indication: SMALL CELL LUNG CANCER
     Dosage: UNK, UNKNOWN FREQ.
     Route: 065
     Dates: start: 201406

REACTIONS (6)
  - Renal failure [Unknown]
  - Lung disorder [Unknown]
  - Asthenia [Unknown]
  - Dyspnoea [Unknown]
  - Oral dysaesthesia [Unknown]
  - Pneumonia [Unknown]
